FAERS Safety Report 12423636 (Version 3)
Quarter: 2016Q3

REPORT INFORMATION
  Report Type: Spontaneous
  Country: US (occurrence: US)
  Receive Date: 20160601
  Receipt Date: 20160711
  Transmission Date: 20161109
  Serious: Yes (Death, Hospitalization)
  Sender: FDA-Public Use
  Company Number: US-UNITED THERAPEUTICS-UNT-2016-008538

PATIENT
  Age: 53 Year
  Sex: Male
  Weight: 73.47 kg

DRUGS (1)
  1. TYVASO [Suspect]
     Active Substance: TREPROSTINIL
     Indication: PULMONARY ARTERIAL HYPERTENSION
     Dosage: 18-72 ?G, QID
     Dates: start: 20151204

REACTIONS (4)
  - Pulmonary arterial hypertension [Unknown]
  - Product use issue [Unknown]
  - Dyspnoea [Unknown]
  - Sepsis [Fatal]

NARRATIVE: CASE EVENT DATE: 20160524
